FAERS Safety Report 8422120-7 (Version None)
Quarter: 2012Q2

REPORT INFORMATION
  Report Type: 
  Country: None (occurrence: None)
  Receive Date: 20120608
  Receipt Date: 20120604
  Transmission Date: 20120825
  Serious: Yes (Other)
  Sender: FDA-Public Use
  Company Number: PHHO2012IT008548

PATIENT

DRUGS (4)
  1. DISSENTEN [Concomitant]
     Indication: COLITIS ULCERATIVE
     Dosage: 1 CMX2
     Dates: start: 20080915
  2. LEXOTAN [Concomitant]
     Indication: DEPRESSION
     Dosage: Q4-5+10+15
     Dates: start: 20110621
  3. GILENYA [Suspect]
     Indication: RELAPSING-REMITTING MULTIPLE SCLEROSIS
     Dosage: 0.5 MG, QD
     Route: 048
     Dates: start: 20120405, end: 20120411
  4. DEPAKIN [Concomitant]
     Indication: DEPRESSION
     Dosage: 300 MG 1C+500 MG 1C
     Dates: start: 20110621

REACTIONS (1)
  - OEDEMA PERIPHERAL [None]
